FAERS Safety Report 10815700 (Version 4)
Quarter: 2019Q2

REPORT INFORMATION
  Report Type: Report from Study
  Country: JP (occurrence: JP)
  Receive Date: 20150218
  Receipt Date: 20190415
  Transmission Date: 20190711
  Serious: Yes (Death, Hospitalization, Other)
  Sender: FDA-Public Use
  Company Number: JP-SHIRE-JP201501323

PATIENT

DRUGS (19)
  1. KAYEXALATE [Suspect]
     Active Substance: SODIUM POLYSTYRENE SULFONATE
     Indication: HYPERKALAEMIA
     Dosage: 19.62 G, UNKNOWN
     Route: 048
     Dates: start: 20110326, end: 201410
  2. ALFAROL [Concomitant]
     Active Substance: ALFACALCIDOL
     Indication: HYPERPARATHYROIDISM SECONDARY
     Dosage: 0.25 UG, UNKNOWN
     Route: 048
     Dates: start: 20110326
  3. DALFAROL [Concomitant]
     Indication: PRODUCT USED FOR UNKNOWN INDICATION
  4. 405 (LANTHANUM CARBONATE) [Suspect]
     Active Substance: LANTHANUM CARBONATE
     Indication: HYPERPHOSPHATAEMIA
     Dosage: 500 MILLILITER
     Route: 048
     Dates: start: 20140705, end: 20140808
  5. PURSENNIDE (SENNA ALEXANDRINA LEAF) [Concomitant]
     Active Substance: SENNA LEAF
     Indication: CONSTIPATION
     Dosage: 2 DF, UNKNOWN
     Route: 048
     Dates: start: 20110326
  6. XYZAL [Concomitant]
     Active Substance: LEVOCETIRIZINE DIHYDROCHLORIDE
     Indication: PRURITUS
     Dosage: 5 MG, UNKNOWN
     Route: 048
     Dates: start: 20110326
  7. PRAVASTATIN SODIUM. [Concomitant]
     Active Substance: PRAVASTATIN SODIUM
     Indication: HYPERLIPIDAEMIA
     Dosage: 10 MG, UNKNOWN
     Route: 048
     Dates: start: 20110326
  8. EPOETIN ALFA [Concomitant]
     Active Substance: ERYTHROPOIETIN
     Indication: NEPHROGENIC ANAEMIA
     Dosage: 6750 IU, UNKNOWN
     Route: 042
     Dates: start: 20110326
  9. NORVASC [Concomitant]
     Active Substance: AMLODIPINE BESYLATE
     Indication: HYPERTENSION
     Dosage: 10 MG, UNKNOWN
     Route: 048
     Dates: start: 20141030
  10. LASIX [Concomitant]
     Active Substance: FUROSEMIDE
     Indication: CHRONIC KIDNEY DISEASE
     Dosage: UNK, UNKNOWN (6 TABLETS)
     Route: 048
     Dates: start: 20110326
  11. RESPORIMIN [Concomitant]
     Indication: NEPHROGENIC ANAEMIA
  12. TAKEPRON [Concomitant]
     Active Substance: LANSOPRAZOLE
     Indication: GASTROOESOPHAGEAL REFLUX DISEASE
     Dosage: 15 MG, UNKNOWN
     Route: 048
     Dates: start: 20120619
  13. SIGMART [Concomitant]
     Active Substance: NICORANDIL
     Indication: MYOCARDIAL ISCHAEMIA
     Dosage: UNK, UNKNOWN (3 TABLETS)
     Route: 048
     Dates: start: 20120521
  14. FESIN [Concomitant]
     Active Substance: IRON SUCROSE
     Indication: IRON DEFICIENCY ANAEMIA
     Dosage: 40 MG, UNKNOWN
     Route: 042
     Dates: start: 20110419
  15. BAYASPIRIN [Concomitant]
     Active Substance: ASPIRIN
     Indication: MYOCARDIAL ISCHAEMIA
     Dosage: 1 DF, UNKNOWN
     Route: 048
     Dates: start: 20110326
  16. PLAVIX [Concomitant]
     Active Substance: CLOPIDOGREL BISULFATE
     Indication: MYOCARDIAL ISCHAEMIA
     Dosage: 75 MG, UNKNOWN
     Route: 048
     Dates: start: 20120619
  17. FEBURIC [Concomitant]
     Active Substance: FEBUXOSTAT
     Indication: HYPERURICAEMIA
     Dosage: 10 MG, UNKNOWN
     Route: 048
     Dates: start: 20121009
  18. TANATRIL [Concomitant]
     Active Substance: IMIDAPRIL
     Indication: HYPERTENSION
     Dosage: 5 MG, UNKNOWN
     Route: 048
     Dates: start: 20140930
  19. DIOVAN [Concomitant]
     Active Substance: VALSARTAN
     Indication: HYPERTENSION
     Dosage: 80 MG, UNKNOWN
     Route: 048
     Dates: start: 20120501

REACTIONS (22)
  - Sepsis [Fatal]
  - Arthralgia [Unknown]
  - Blood pressure decreased [Not Recovered/Not Resolved]
  - Product dose omission [Not Recovered/Not Resolved]
  - Haemorrhagic diathesis [Unknown]
  - Spinal compression fracture [Unknown]
  - Hypophagia [Unknown]
  - Pulmonary tuberculosis [Fatal]
  - Ileus paralytic [Fatal]
  - Seizure [Unknown]
  - Anorexia nervosa [Unknown]
  - Cerebral infarction [Fatal]
  - Dysphagia [Fatal]
  - Altered state of consciousness [Unknown]
  - Blood pressure increased [Unknown]
  - Azotaemia [Fatal]
  - Nasopharyngitis [Recovering/Resolving]
  - Condition aggravated [Unknown]
  - Feeding disorder [Fatal]
  - Spinal osteoarthritis [Fatal]
  - Laryngeal discomfort [Fatal]
  - Malnutrition [Not Recovered/Not Resolved]

NARRATIVE: CASE EVENT DATE: 2014
